FAERS Safety Report 9112331 (Version 1)
Quarter: 2013Q1

REPORT INFORMATION
  Report Type: Spontaneous
  Country: US (occurrence: US)
  Receive Date: 20130219
  Receipt Date: 20130219
  Transmission Date: 20140127
  Serious: No
  Sender: FDA-Public Use
  Company Number: US-BRISTOL-MYERS SQUIBB COMPANY-16703654

PATIENT
  Age: 46 Year
  Sex: Female
  Weight: 86.17 kg

DRUGS (8)
  1. ABATACEPT SUBQ INJECTION 125MG/ML [Suspect]
     Indication: RHEUMATOID ARTHRITIS
     Dosage: LAST INJECTION WAS 17JUN2012
     Route: 058
     Dates: start: 201204
  2. ABATACEPT SUBQ INJECTION 125MG/ML [Suspect]
     Indication: ANKYLOSING SPONDYLITIS
     Dosage: LAST INJECTION WAS 17JUN2012
     Route: 058
     Dates: start: 201204
  3. METHOTREXATE [Concomitant]
     Dosage: METHOTREXATE 40 UNITS
  4. CYMBALTA [Concomitant]
  5. FENTANYL PATCH [Concomitant]
  6. HYDROCODONE [Concomitant]
     Indication: PAIN
  7. TRIAZOLAM [Concomitant]
  8. IBUPROFEN [Concomitant]

REACTIONS (2)
  - Pain [Unknown]
  - Needle issue [Unknown]
